FAERS Safety Report 17897456 (Version 1)
Quarter: 2020Q2

REPORT INFORMATION
  Report Type: Spontaneous
  Country: DE (occurrence: DE)
  Receive Date: 20200616
  Receipt Date: 20200616
  Transmission Date: 20200714
  Serious: Yes (Hospitalization)
  Sender: FDA-Public Use
  Company Number: DE-TEVA-2020-DE-1247694

PATIENT
  Age: 72 Year
  Sex: Male

DRUGS (7)
  1. PROPRANOLOL [Concomitant]
     Active Substance: PROPRANOLOL HYDROCHLORIDE
     Dosage: 30 MILLIGRAM DAILY;  1-1-1-0
  2. LACTULOSE. [Concomitant]
     Active Substance: LACTULOSE
     Dosage: NK MG, 10-10-10-0
  3. THIAMIN (VITAMIN B1) [Concomitant]
     Dosage: 200 MILLIGRAM DAILY;  1-0-0-0
  4. ORNITHINASPARTAT [Concomitant]
     Dosage: 945 GRAM DAILY;  1-1-1-0
  5. SPIRONOLACTON [Suspect]
     Active Substance: SPIRONOLACTONE
     Dosage: 50 MILLIGRAM DAILY;  1-0-0-0
  6. RAMIPRIL. [Concomitant]
     Active Substance: RAMIPRIL
     Dosage: 10 MILLIGRAM DAILY; 1-0-0-0
  7. TORASEMID [Suspect]
     Active Substance: TORSEMIDE
     Dosage: 20 MILLIGRAM DAILY; 1-1-0-0

REACTIONS (7)
  - Somnolence [Unknown]
  - Fatigue [Unknown]
  - Dehydration [Unknown]
  - Abdominal pain [Unknown]
  - Electrolyte imbalance [Unknown]
  - Product monitoring error [Unknown]
  - General physical health deterioration [Unknown]
